FAERS Safety Report 20920483 (Version 1)
Quarter: 2022Q2

REPORT INFORMATION
  Report Type: Spontaneous
  Country: US (occurrence: US)
  Receive Date: 20220606
  Receipt Date: 20220606
  Transmission Date: 20220721
  Serious: No
  Sender: FDA-Public Use
  Company Number: US-NOVARTISTESTPH-NVSC2022US129316

PATIENT
  Age: 37 Year
  Sex: Female

DRUGS (1)
  1. COSENTYX [Suspect]
     Active Substance: SECUKINUMAB
     Indication: Psoriasis
     Dosage: 300 MG, QMO
     Route: 058
     Dates: start: 20220601

REACTIONS (6)
  - Nasopharyngitis [Recovering/Resolving]
  - Nausea [Unknown]
  - Headache [Unknown]
  - Bacterial vulvovaginitis [Unknown]
  - Feeding disorder [Unknown]
  - Taste disorder [Unknown]
